FAERS Safety Report 16375261 (Version 2)
Quarter: 2019Q2

REPORT INFORMATION
  Report Type: Report from Study
  Country: IT (occurrence: IT)
  Receive Date: 20190531
  Receipt Date: 20190621
  Transmission Date: 20190711
  Serious: Yes (Other)
  Sender: FDA-Public Use
  Company Number: IT-TEVA-2019-IT-1056032

PATIENT
  Age: 73 Year
  Sex: Female
  Weight: 60 kg

DRUGS (2)
  1. AZITROMICINA EG 500 MG COMPRESSE RIVESTITE CON FILM [Concomitant]
     Indication: ANTIBIOTIC PROPHYLAXIS
     Route: 048
  2. LEVOFLOXACIN. [Suspect]
     Active Substance: LEVOFLOXACIN
     Indication: LOWER RESPIRATORY TRACT INFECTION
     Dosage: 500 MILLIGRAM DAILY;
     Route: 048
     Dates: start: 20190107, end: 20190112

REACTIONS (1)
  - Tendon injury [Recovered/Resolved]

NARRATIVE: CASE EVENT DATE: 20190112
